FAERS Safety Report 5574417-6 (Version None)
Quarter: 2007Q4

REPORT INFORMATION
  Report Type: 
  Country: None (occurrence: None)
  Receive Date: 20071221
  Receipt Date: 20071211
  Transmission Date: 20080405
  Serious: Yes (Other)
  Sender: FDA-Public Use
  Company Number: TPA2007A01000

PATIENT
  Age: 56 Year
  Sex: Male

DRUGS (8)
  1. ACTOS [Suspect]
     Dosage: PER ORAL
     Route: 048
     Dates: end: 20070409
  2. LIPITOR [Concomitant]
  3. ALLOPURINOL [Concomitant]
  4. COLCHICUM JTL LIQ [Concomitant]
  5. AMARYL [Concomitant]
  6. ASA (ACETYOLSALICYLIC ACID) [Concomitant]
  7. CHANTIX [Concomitant]
  8. CYMBALTA [Concomitant]

REACTIONS (16)
  - ANXIETY [None]
  - CARDIAC FAILURE CONGESTIVE [None]
  - CARDIAC STRESS TEST ABNORMAL [None]
  - CHEST PAIN [None]
  - CORONARY ARTERY DISEASE [None]
  - COUGH [None]
  - DIABETIC CARDIOMYOPATHY [None]
  - DRUG WITHDRAWAL SYNDROME [None]
  - FLUID RETENTION [None]
  - LEFT VENTRICULAR DYSFUNCTION [None]
  - MYOCARDIAL ISCHAEMIA [None]
  - OEDEMA [None]
  - PALPITATIONS [None]
  - PLEURAL EFFUSION [None]
  - TOBACCO USER [None]
  - WEIGHT INCREASED [None]
